FAERS Safety Report 6958399-8 (Version None)
Quarter: 2010Q3

REPORT INFORMATION
  Report Type: 
  Country: None (occurrence: None)
  Receive Date: 20100831
  Receipt Date: 20100818
  Transmission Date: 20110219
  Serious: Yes (Hospitalization)
  Sender: FDA-Public Use
  Company Number: BR-US-EMD SERONO, INC.-7015002

PATIENT
  Sex: Male

DRUGS (9)
  1. REBIF [Suspect]
     Indication: RELAPSING-REMITTING MULTIPLE SCLEROSIS
     Route: 058
     Dates: start: 20100227, end: 20100601
  2. OMEPRAZOLE [Concomitant]
  3. CARVEDILOL [Concomitant]
  4. MONOCORDIL [Concomitant]
  5. ASPIRIN [Concomitant]
  6. CARBAMAZEPINE [Concomitant]
  7. PAMELOR [Concomitant]
  8. GLIONIL [Concomitant]
  9. NATURETTI [Concomitant]

REACTIONS (7)
  - ABDOMINAL DISTENSION [None]
  - CARDIAC FAILURE [None]
  - DYSPNOEA [None]
  - FATIGUE [None]
  - RENAL FAILURE [None]
  - WOUND INFECTION BACTERIAL [None]
  - WOUND NECROSIS [None]
